FAERS Safety Report 5632666-2 (Version None)
Quarter: 2008Q1

REPORT INFORMATION
  Report Type: 
  Country: None (occurrence: None)
  Receive Date: 20080220
  Receipt Date: 20080208
  Transmission Date: 20080703
  Serious: Yes (Hospitalization, Other)
  Sender: FDA-Public Use
  Company Number: US-PFIZER INC-2008013870

PATIENT
  Sex: Female
  Weight: 83.9 kg

DRUGS (2)
  1. CHANTIX [Suspect]
     Indication: SMOKING CESSATION THERAPY
  2. ANTIHYPERTENSIVES [Concomitant]

REACTIONS (9)
  - DISABILITY [None]
  - GALLBLADDER DISORDER [None]
  - GASTRECTOMY [None]
  - HAEMORRHAGE [None]
  - MALNUTRITION [None]
  - MENTAL IMPAIRMENT [None]
  - PNEUMONIA [None]
  - ULCER HAEMORRHAGE [None]
  - WEIGHT DECREASED [None]
